FAERS Safety Report 9710676 (Version 1)
Quarter: 2013Q4

REPORT INFORMATION
  Report Type: Spontaneous
  Country: US (occurrence: US)
  Receive Date: 20131126
  Receipt Date: 20131126
  Transmission Date: 20140711
  Serious: Yes (Other)
  Sender: FDA-Public Use
  Company Number: US-BRISTOL-MYERS SQUIBB COMPANY-19461649

PATIENT
  Sex: Male
  Weight: 112.47 kg

DRUGS (1)
  1. BYDUREON [Suspect]
     Indication: DIABETES MELLITUS
     Dates: start: 20130911

REACTIONS (2)
  - Weight decreased [Unknown]
  - Decreased appetite [Unknown]
